FAERS Safety Report 4842575-4 (Version None)
Quarter: 2005Q4

REPORT INFORMATION
  Report Type: 
  Country: None (occurrence: None)
  Receive Date: 20051129
  Receipt Date: 20050815
  Transmission Date: 20060501
  Serious: Yes (Other)
  Sender: FDA-Public Use
  Company Number: 2005158592

PATIENT
  Sex: Male

DRUGS (1)
  1. VIAGRA [Suspect]
     Indication: ILL-DEFINED DISORDER
     Dosage: ORAL
     Route: 048

REACTIONS (5)
  - BLINDNESS UNILATERAL [None]
  - DRUG INEFFECTIVE [None]
  - EYE HAEMORRHAGE [None]
  - HEADACHE [None]
  - OVERDOSE [None]
